FAERS Safety Report 9633795 (Version 1)
Quarter: 2013Q4

REPORT INFORMATION
  Report Type: Spontaneous
  Country: FR (occurrence: FR)
  Receive Date: 20131021
  Receipt Date: 20131021
  Transmission Date: 20140711
  Serious: Yes (Other)
  Sender: FDA-Public Use
  Company Number: FR-SA-2013SA105044

PATIENT
  Age: 52 Year
  Sex: Male

DRUGS (6)
  1. RIFADINE [Suspect]
     Indication: OSTEITIS
     Route: 048
     Dates: start: 20130905
  2. TAVANIC [Suspect]
     Indication: OSTEITIS
     Route: 048
     Dates: start: 20130906, end: 20131003
  3. VANCOMYCINE [Concomitant]
     Indication: OSTEITIS
     Dates: start: 20130825, end: 20130827
  4. TIENAM [Concomitant]
     Indication: OSTEITIS
     Dates: start: 20130825, end: 20130827
  5. ROCEPHINE [Concomitant]
     Indication: OSTEITIS
     Route: 042
     Dates: start: 20130828, end: 20130904
  6. DALACIN [Concomitant]
     Indication: OSTEITIS
     Route: 048
     Dates: start: 20130905, end: 20130905

REACTIONS (5)
  - Tendon pain [Not Recovered/Not Resolved]
  - Asthenia [Not Recovered/Not Resolved]
  - Oral fungal infection [Not Recovered/Not Resolved]
  - Myalgia [Not Recovered/Not Resolved]
  - Thrombocytopenia [Not Recovered/Not Resolved]
